APPROVED DRUG PRODUCT: DEXAMETHASONE
Active Ingredient: DEXAMETHASONE
Strength: 4MG
Dosage Form/Route: TABLET;ORAL
Application: A080399 | Product #002 | TE Code: AB
Applicant: PRASCO LLC DBA PRASCO LABORATORIES
Approved: Apr 20, 2022 | RLD: No | RS: No | Type: RX